FAERS Safety Report 7197636-4 (Version None)
Quarter: 2010Q4

REPORT INFORMATION
  Report Type: 
  Country: None (occurrence: None)
  Receive Date: 20101227
  Receipt Date: 20101220
  Transmission Date: 20110411
  Serious: Yes (Hospitalization)
  Sender: FDA-Public Use
  Company Number: FR-PFIZER INC-2010175245

PATIENT
  Age: 74 Year
  Sex: Female

DRUGS (8)
  1. SUTENT [Suspect]
     Indication: GASTROINTESTINAL STROMAL TUMOUR
     Dosage: 37.5 MG, 1X/DAY
     Route: 048
     Dates: start: 20100601, end: 20100815
  2. KARDEGIC [Concomitant]
     Dosage: 160 MG, 1X/DAY
     Route: 048
     Dates: start: 20100721
  3. NEXIUM [Concomitant]
     Dosage: 20 MG, 1X/DAY
     Route: 048
  4. COAPROVEL [Concomitant]
     Dosage: 1 DF, 1X/DAY
     Route: 048
  5. ACUPAN [Concomitant]
     Dosage: 1 DF, 3X/DAY
     Route: 048
     Dates: start: 20100525
  6. LYRICA [Concomitant]
     Dosage: 50 MG, 2X/DAY
     Route: 048
     Dates: start: 20100501
  7. ORAMORPH SR [Concomitant]
     Dosage: 4 GTT, 4X/DAY
     Route: 048
     Dates: start: 20100501
  8. DAFALGAN [Concomitant]
     Dosage: 1 G, 4X/DAY
     Route: 048
     Dates: start: 20100501

REACTIONS (1)
  - TRANSIENT ISCHAEMIC ATTACK [None]
